FAERS Safety Report 5275646-1 (Version None)
Quarter: 2007Q1

REPORT INFORMATION
  Report Type: 
  Country: None (occurrence: None)
  Receive Date: 20070326
  Receipt Date: 20070312
  Transmission Date: 20070707
  Serious: Yes (Other)
  Sender: FDA-Public Use
  Company Number: US-SANOFI-SYNTHELABO-A03200702084

PATIENT
  Sex: Male

DRUGS (3)
  1. AMBIEN [Suspect]
     Route: 048
     Dates: end: 20061014
  2. PAXIL [Concomitant]
     Indication: DRUG USE FOR UNKNOWN INDICATION
     Route: 065
  3. AMBIEN CR [Suspect]
     Indication: INSOMNIA
     Route: 048
     Dates: end: 20061014

REACTIONS (4)
  - AMNESIA [None]
  - ROAD TRAFFIC ACCIDENT [None]
  - SLEEP WALKING [None]
  - SOMNOLENCE [None]
